FAERS Safety Report 7878871-6 (Version None)
Quarter: 2011Q4

REPORT INFORMATION
  Report Type: 
  Country: None (occurrence: None)
  Receive Date: 20111021
  Receipt Date: 20110622
  Transmission Date: 20120403
  Serious: Yes (Other)
  Sender: FDA-Public Use
  Company Number: 2011SP029274

PATIENT
  Age: 41 Year
  Sex: Female

DRUGS (2)
  1. TOPAMAX [Concomitant]
  2. TEMODAR [Suspect]
     Indication: BRAIN NEOPLASM
     Dosage: 420 MG;QD;PO
     Route: 048
     Dates: start: 20100101

REACTIONS (3)
  - AMNESIA [None]
  - VOMITING [None]
  - ASTHENIA [None]
